FAERS Safety Report 21623709 (Version 3)
Quarter: 2025Q3

REPORT INFORMATION
  Report Type: Report from Study
  Country: CA (occurrence: CA)
  Receive Date: 20221121
  Receipt Date: 20250806
  Transmission Date: 20251021
  Serious: Yes (Hospitalization, Other)
  Sender: TAKEDA
  Company Number: CA-TAKEDA-2018TUS013579

PATIENT
  Sex: Female

DRUGS (14)
  1. VEDOLIZUMAB [Suspect]
     Active Substance: VEDOLIZUMAB
     Indication: Crohn^s disease
  2. VEDOLIZUMAB [Suspect]
     Active Substance: VEDOLIZUMAB
  3. VEDOLIZUMAB [Suspect]
     Active Substance: VEDOLIZUMAB
  4. VEDOLIZUMAB [Suspect]
     Active Substance: VEDOLIZUMAB
  5. VEDOLIZUMAB [Suspect]
     Active Substance: VEDOLIZUMAB
  6. VEDOLIZUMAB [Suspect]
     Active Substance: VEDOLIZUMAB
     Dosage: 300 MILLIGRAM, Q4WEEKS
     Dates: start: 20230104
  7. VEDOLIZUMAB [Suspect]
     Active Substance: VEDOLIZUMAB
  8. CORTIFOAM [Concomitant]
     Active Substance: HYDROCORTISONE ACETATE
  9. IRON [Concomitant]
     Active Substance: IRON
  10. OXYTOCIN [Concomitant]
     Active Substance: OXYTOCIN
     Indication: Arthralgia
  11. BENZACLIN [Concomitant]
     Active Substance: BENZOYL PEROXIDE\CLINDAMYCIN PHOSPHATE
     Indication: Acne
  12. TYLENOL [Concomitant]
     Active Substance: ACETAMINOPHEN
     Indication: Pain
  13. ADVIL                              /00044201/ [Concomitant]
     Indication: Pain
  14. PERCOCET [Concomitant]
     Active Substance: ACETAMINOPHEN\OXYCODONE HYDROCHLORIDE
     Indication: Pain

REACTIONS (14)
  - Crohn^s disease [Unknown]
  - Malaise [Not Recovered/Not Resolved]
  - Pain [Recovered/Resolved]
  - Renal pain [Unknown]
  - Brain fog [Unknown]
  - Product dispensing error [Unknown]
  - Rhinorrhoea [Recovered/Resolved]
  - Asthenia [Unknown]
  - Chills [Unknown]
  - Abdominal distension [Unknown]
  - Headache [Unknown]
  - Cough [Recovered/Resolved]
  - Nausea [Unknown]
  - Pyrexia [Unknown]

NARRATIVE: CASE EVENT DATE: 20180101
